FAERS Safety Report 9536540 (Version 1)
Quarter: 2013Q3

REPORT INFORMATION
  Report Type: Spontaneous
  Country: FR (occurrence: FR)
  Receive Date: 20130919
  Receipt Date: 20130919
  Transmission Date: 20140515
  Serious: Yes (Hospitalization, Other)
  Sender: FDA-Public Use
  Company Number: FR-JNJFOC-20130904606

PATIENT
  Age: 90 Year
  Sex: Male

DRUGS (15)
  1. REMINYL [Suspect]
     Indication: DEMENTIA WITH LEWY BODIES
     Dosage: IN THE MORNING
     Route: 048
  2. MODOPAR [Suspect]
     Indication: PARKINSON^S DISEASE
     Route: 048
     Dates: start: 20130902
  3. MODOPAR [Suspect]
     Indication: PARKINSON^S DISEASE
     Route: 048
  4. ATENOLOL [Suspect]
     Indication: MYOCARDIAL ISCHAEMIA
     Dosage: IN THE MORNING
     Route: 048
  5. ATENOLOL [Suspect]
     Indication: MYOCARDIAL ISCHAEMIA
     Route: 048
     Dates: start: 20130902
  6. TRANSIPEG [Concomitant]
     Indication: PRODUCT USED FOR UNKNOWN INDICATION
     Dosage: IN THE MORNING
     Route: 065
  7. TRANSIPEG [Concomitant]
     Indication: PRODUCT USED FOR UNKNOWN INDICATION
     Route: 065
     Dates: start: 20130902
  8. PARACETAMOL [Concomitant]
     Indication: PRODUCT USED FOR UNKNOWN INDICATION
     Dosage: (1-1-1)
     Route: 065
  9. PARACETAMOL [Concomitant]
     Indication: PRODUCT USED FOR UNKNOWN INDICATION
     Route: 065
     Dates: start: 20130902
  10. TADENAN [Concomitant]
     Indication: PRODUCT USED FOR UNKNOWN INDICATION
     Route: 065
     Dates: start: 20130902
  11. TADENAN [Concomitant]
     Indication: PRODUCT USED FOR UNKNOWN INDICATION
     Dosage: IN MORNING AND EVENING
     Route: 065
  12. LEVODOPA/BENSERAZIDE [Concomitant]
     Dosage: (1-1-1)
     Route: 065
  13. KARDEGIC [Concomitant]
     Dosage: AT NOON
     Route: 065
  14. SERESTA [Concomitant]
     Dosage: IN MORNING AND EVENING
     Route: 065
  15. MIANSERIN [Concomitant]
     Dosage: IN THE EVENING
     Route: 065

REACTIONS (4)
  - Grand mal convulsion [Recovered/Resolved]
  - Lung disorder [Unknown]
  - Hypoxia [Unknown]
  - Incorrect dose administered [Unknown]
